FAERS Safety Report 9210848 (Version 2)
Quarter: 2013Q2

REPORT INFORMATION
  Report Type: Spontaneous
  Country: US (occurrence: US)
  Receive Date: 20130404
  Receipt Date: 20130429
  Transmission Date: 20140414
  Serious: Yes (Hospitalization, Other)
  Sender: FDA-Public Use
  Company Number: US-PFIZER INC-2013104973

PATIENT
  Age: 76 Year
  Sex: Female
  Weight: 86 kg

DRUGS (6)
  1. LIPITOR [Suspect]
     Indication: BLOOD CHOLESTEROL INCREASED
     Dosage: 80 MG, 1X/DAY
     Route: 048
     Dates: start: 2009
  2. LIPITOR [Suspect]
     Dosage: UNK
     Dates: start: 2011
  3. METFORMIN [Concomitant]
     Indication: DIABETES MELLITUS
     Dosage: UNK
  4. JANUVIA [Concomitant]
     Indication: DIABETES MELLITUS
     Dosage: UNK
  5. GLIMEPIRIDE [Concomitant]
     Indication: DIABETES MELLITUS
     Dosage: UNK
  6. HCTZ [Concomitant]
     Dosage: UNK, 1X/DAY

REACTIONS (7)
  - Arrhythmia [Unknown]
  - Intervertebral disc protrusion [Unknown]
  - Gastritis bacterial [Recovered/Resolved]
  - Dehydration [Recovered/Resolved]
  - Diarrhoea [Recovered/Resolved]
  - Sinusitis [Unknown]
  - Myalgia [Unknown]
